FAERS Safety Report 6977526-X (Version None)
Quarter: 2010Q3

REPORT INFORMATION
  Report Type: 
  Country: None (occurrence: None)
  Receive Date: 20100910
  Receipt Date: 20100903
  Transmission Date: 20110219
  Serious: Yes (Hospitalization)
  Sender: FDA-Public Use
  Company Number: JP-AMGEN-QUU433373

PATIENT
  Sex: Female
  Weight: 45 kg

DRUGS (7)
  1. ENBREL [Suspect]
     Indication: RHEUMATOID ARTHRITIS
     Route: 058
     Dates: start: 20100309, end: 20100504
  2. CELECOXIB [Concomitant]
     Dosage: ^(200) 2 TABLETS/2^
  3. CARFENIL [Concomitant]
     Indication: RHEUMATOID ARTHRITIS
     Route: 048
     Dates: start: 20100225, end: 20100505
  4. HERBAL PREPARATION [Concomitant]
     Dosage: ^9G/3^
  5. PREDONINE [Concomitant]
     Indication: RHEUMATOID ARTHRITIS
     Route: 048
     Dates: start: 20100225, end: 20100322
  6. PREDONINE [Concomitant]
     Route: 048
     Dates: start: 20100323, end: 20100427
  7. FOSAMAX [Concomitant]
     Indication: RHEUMATOID ARTHRITIS
     Route: 048
     Dates: start: 20100225

REACTIONS (2)
  - ANAEMIA [None]
  - ANAEMIA MACROCYTIC [None]
